FAERS Safety Report 24399399 (Version 1)
Quarter: 2024Q4

REPORT INFORMATION
  Report Type: Spontaneous
  Country: CN (occurrence: CN)
  Receive Date: 20241004
  Receipt Date: 20241004
  Transmission Date: 20250115
  Serious: Yes (Hospitalization, Other)
  Sender: ABBVIE
  Company Number: CN-PFIZER INC-PV202400126922

PATIENT
  Age: 93 Year
  Sex: Male
  Weight: 50 kg

DRUGS (2)
  1. AVIBACTAM SODIUM\CEFTAZIDIME [Suspect]
     Active Substance: AVIBACTAM SODIUM\CEFTAZIDIME
     Indication: Pneumonia
     Dosage: TIME INTERVAL: 0.33333333 DAYS: 2.500 G, 3X/DAY
     Route: 041
     Dates: start: 20240822, end: 20240905
  2. ZYVOX [Suspect]
     Active Substance: LINEZOLID
     Indication: Pneumonia
     Dosage: 600.000 MG, 2X/DAY
     Route: 041
     Dates: start: 20240823, end: 20240905

REACTIONS (1)
  - Myelosuppression [Recovering/Resolving]

NARRATIVE: CASE EVENT DATE: 20240905
